FAERS Safety Report 19510769 (Version 2)
Quarter: 2021Q3

REPORT INFORMATION
  Report Type: Spontaneous
  Country: US (occurrence: US)
  Receive Date: 20210709
  Receipt Date: 20210720
  Transmission Date: 20211014
  Serious: Yes (Hospitalization)
  Sender: FDA-Public Use
  Company Number: US-ROCHE-2862936

PATIENT
  Age: 0 Day
  Sex: Male
  Weight: 115.74 kg

DRUGS (10)
  1. ZOSYN [Concomitant]
     Active Substance: PIPERACILLIN SODIUM\TAZOBACTAM SODIUM
  2. MORPHINE [Concomitant]
     Active Substance: MORPHINE
  3. AZITHROMYCIN ANHYDROUS. [Concomitant]
     Active Substance: AZITHROMYCIN ANHYDROUS
  4. LEVOTHYROXINE. [Concomitant]
     Active Substance: LEVOTHYROXINE
     Dates: start: 20210704
  5. VANCOMYCIN [Concomitant]
     Active Substance: VANCOMYCIN
     Dates: start: 20210704
  6. TUCATINIB [Suspect]
     Active Substance: TUCATINIB
     Indication: TRANSITIONAL CELL CARCINOMA
     Route: 048
     Dates: start: 20210423, end: 20210622
  7. FULVESTRANT. [Suspect]
     Active Substance: FULVESTRANT
     Indication: TRANSITIONAL CELL CARCINOMA
     Dosage: CYCLE 1 DAY 1, AS WELL AS ON CYCLE 1 DAY 15.
     Route: 030
  8. TRASTUZUMAB. [Suspect]
     Active Substance: TRASTUZUMAB
     Indication: TRANSITIONAL CELL CARCINOMA
     Dosage: 8 MG/KG
     Route: 042
     Dates: start: 20210423, end: 20210615
  9. CEFEPIME [Concomitant]
     Active Substance: CEFEPIME HYDROCHLORIDE
     Dates: start: 20210704
  10. ROCEPHIN [Concomitant]
     Active Substance: CEFTRIAXONE SODIUM

REACTIONS (1)
  - Cholecystitis [Recovered/Resolved with Sequelae]

NARRATIVE: CASE EVENT DATE: 20210629
